FAERS Safety Report 15644004 (Version 9)
Quarter: 2019Q3

REPORT INFORMATION
  Report Type: Spontaneous
  Country: FR (occurrence: FR)
  Receive Date: 20181121
  Receipt Date: 20190926
  Transmission Date: 20191004
  Serious: Yes (Other)
  Sender: FDA-Public Use
  Company Number: FR-PFIZER INC-2018477058

PATIENT
  Age: 96 Year
  Sex: Female
  Weight: 54 kg

DRUGS (13)
  1. ACETYLSALICYLIC ACID [Suspect]
     Active Substance: ASPIRIN
     Dosage: 100 MG, 1X/DAY
     Route: 048
  2. LAMOTRIGINE. [Suspect]
     Active Substance: LAMOTRIGINE
     Dosage: 100 MG, QD
     Route: 048
  3. GABAPENTINE PFIZER [Suspect]
     Active Substance: GABAPENTIN
     Dosage: 200 MG, QD
     Route: 048
  4. SEROPLEX [Suspect]
     Active Substance: ESCITALOPRAM OXALATE
     Dosage: 5 MG, 1X/DAY
     Route: 048
  5. TRANSIPEG [MACROGOL] [Concomitant]
     Active Substance: POLYETHYLENE GLYCOLS
     Dosage: 11.8 G, 1X/DAY
     Route: 048
  6. LEVOTHYROXINE SODIQUE [Concomitant]
     Active Substance: LEVOTHYROXINE SODIUM
     Dosage: 30 GTT DROPS, QD
     Route: 048
  7. FLUIDABAK [Concomitant]
     Active Substance: POVIDONE
     Dosage: 3 GTT DROPS, QD
     Route: 047
  8. GLUCONATE SODIUM/POTASSIUM CHLORIDE/SODIUM ACETATE/SODIUM CHLORIDE [Concomitant]
     Dosage: 1 CS PAR JOUR ROUTE
     Route: 048
  9. EXEMESTANE. [Suspect]
     Active Substance: EXEMESTANE
     Dosage: 25 MG, 1X/DAY
     Route: 048
  10. LASILIX [Suspect]
     Active Substance: FUROSEMIDE
     Dosage: 20 MG, 1X/DAY
     Route: 048
  11. GLUCONATE DE POTASSIUM [Concomitant]
     Dosage: 1 DF, QD (1 CS PER DAY)
     Route: 048
  12. RAMIPRIL. [Suspect]
     Active Substance: RAMIPRIL
     Dosage: 2.5 MG, 1X/DAY
     Route: 048
  13. BISOPROLOL FUMARATE. [Suspect]
     Active Substance: BISOPROLOL FUMARATE
     Dosage: 1.25 MG, 1X/DAY
     Route: 048

REACTIONS (1)
  - Cholestasis [Not Recovered/Not Resolved]

NARRATIVE: CASE EVENT DATE: 2018
